FAERS Safety Report 5340827-5 (Version None)
Quarter: 2007Q2

REPORT INFORMATION
  Report Type: 
  Country: None (occurrence: None)
  Receive Date: 20070405
  Receipt Date: 20070201
  Transmission Date: 20071010
  Serious: No
  Sender: FDA-Public Use
  Company Number: US200702000357

PATIENT
  Age: 47 Year
  Sex: Female

DRUGS (2)
  1. CYMBALTA [Suspect]
     Indication: DEPRESSION
     Dosage: 30 MG, EACH EVENING, ORAL
     Route: 048
     Dates: start: 20070126
  2. IBUPROFEN [Concomitant]

REACTIONS (3)
  - ABNORMAL SENSATION IN EYE [None]
  - MYDRIASIS [None]
  - NAUSEA [None]
